FAERS Safety Report 8068574-X (Version None)
Quarter: 2012Q1

REPORT INFORMATION
  Report Type: 
  Country: None (occurrence: None)
  Receive Date: 20120124
  Receipt Date: 20111111
  Transmission Date: 20120608
  Serious: No
  Sender: FDA-Public Use
  Company Number: US-AMGEN-USASP2011039132

PATIENT
  Age: 67 Year
  Sex: Female
  Weight: 56.689 kg

DRUGS (4)
  1. AROMASIN [Concomitant]
  2. XGEVA [Suspect]
     Indication: METASTASES TO BONE
     Dosage: UNK
  3. EFFEXOR [Concomitant]
  4. SOMA [Concomitant]
     Dosage: UNK UNK, PRN

REACTIONS (5)
  - PAIN [None]
  - AXILLARY PAIN [None]
  - FATIGUE [None]
  - ARTHRALGIA [None]
  - INFLAMMATION [None]
